FAERS Safety Report 6274909-0 (Version None)
Quarter: 2009Q3

REPORT INFORMATION
  Report Type: 
  Country: None (occurrence: None)
  Receive Date: 20090721
  Receipt Date: 20090715
  Transmission Date: 20100115
  Serious: Yes (Other)
  Sender: FDA-Public Use
  Company Number: US-JNJFOC-20090705553

PATIENT

DRUGS (1)
  1. LEVAQUIN [Suspect]
     Indication: EAR PAIN
     Dosage: FOR 2 WEEKS
     Route: 065

REACTIONS (2)
  - BLOOD PRESSURE INCREASED [None]
  - THERMAL BURN [None]
